FAERS Safety Report 9487058 (Version 1)
Quarter: 2013Q3

REPORT INFORMATION
  Report Type: Spontaneous
  Country: GB (occurrence: GB)
  Receive Date: 20130829
  Receipt Date: 20130829
  Transmission Date: 20140515
  Serious: Yes (Hospitalization, Other)
  Sender: FDA-Public Use
  Company Number: GB-ASTRAZENECA-2013SE65171

PATIENT
  Age: 47 Year
  Sex: Female

DRUGS (8)
  1. QUETIAPINE [Suspect]
     Route: 048
  2. ASPIRIN [Concomitant]
  3. BISOPROLOL [Concomitant]
  4. LORATADINE [Concomitant]
  5. MIRTAZAPINE [Concomitant]
  6. OMEPRAZOLE [Concomitant]
  7. RAMIPRIL [Concomitant]
  8. SERTRALINE [Concomitant]

REACTIONS (1)
  - Pericarditis [Unknown]
